FAERS Safety Report 21896235 (Version 3)
Quarter: 2023Q2

REPORT INFORMATION
  Report Type: Spontaneous
  Country: US (occurrence: US)
  Receive Date: 20230123
  Receipt Date: 20230530
  Transmission Date: 20230722
  Serious: Yes (Other)
  Sender: FDA-Public Use
  Company Number: US-BRISTOL-MYERS SQUIBB COMPANY-2023-009290

PATIENT
  Age: 90 Year
  Sex: Female
  Weight: 70.31 kg

DRUGS (1)
  1. REVLIMID [Suspect]
     Active Substance: LENALIDOMIDE
     Indication: Plasma cell myeloma
     Dosage: 3W, 1 WOFF (21D ON 7D OFF)
     Route: 048
     Dates: start: 20220301

REACTIONS (5)
  - Fall [Unknown]
  - Fracture [Unknown]
  - Urinary tract infection [Unknown]
  - Full blood count abnormal [Unknown]
  - Metabolic function test abnormal [Unknown]
